FAERS Safety Report 6870888-3 (Version None)
Quarter: 2010Q3

REPORT INFORMATION
  Report Type: 
  Country: None (occurrence: None)
  Receive Date: 20100723
  Receipt Date: 20100712
  Transmission Date: 20110219
  Serious: Yes (Other)
  Sender: FDA-Public Use
  Company Number: PHHY2010BR45981

PATIENT
  Sex: Female

DRUGS (2)
  1. DIOVAN [Suspect]
     Dosage: (160 MG),1 TABLET IN THE MORNING
  2. ATENOLOL [Concomitant]
     Dosage: (50MG),1 TABLET IN THE MORNING

REACTIONS (2)
  - DRUG INEFFECTIVE [None]
  - HYPERTENSION [None]
